FAERS Safety Report 8347164-5 (Version None)
Quarter: 2012Q2

REPORT INFORMATION
  Report Type: 
  Country: None (occurrence: None)
  Receive Date: 20120509
  Receipt Date: 20120507
  Transmission Date: 20120825
  Serious: Yes (Death, Hospitalization)
  Sender: FDA-Public Use
  Company Number: EG-ROCHE-1045348

PATIENT
  Age: 38 Year
  Sex: Female

DRUGS (4)
  1. CISPLATIN [Concomitant]
  2. AVASTIN [Suspect]
     Indication: BREAST CANCER METASTATIC
     Route: 041
  3. FLUOROURACIL [Concomitant]
  4. NAVELBINE [Concomitant]

REACTIONS (2)
  - LOSS OF CONSCIOUSNESS [None]
  - METASTASES TO CENTRAL NERVOUS SYSTEM [None]
